FAERS Safety Report 9285211 (Version 2)
Quarter: 2013Q3

REPORT INFORMATION
  Report Type: Report from Study
  Country: US (occurrence: US)
  Receive Date: 20130513
  Receipt Date: 20130822
  Transmission Date: 20140515
  Serious: Yes (Hospitalization)
  Sender: FDA-Public Use
  Company Number: US-MYLANLABS-2013S1009648

PATIENT
  Age: 59 Year
  Sex: Female
  Weight: 113 kg

DRUGS (6)
  1. MAXZIDE TABLETS [Suspect]
     Indication: HYPERTENSION
     Route: 048
     Dates: start: 20080408, end: 20091008
  2. BLINDED THERAPY [Suspect]
     Indication: OSTEOARTHRITIS
     Dates: start: 20090422, end: 20091005
  3. BLINDED THERAPY [Suspect]
     Indication: RHEUMATOID ARTHRITIS
     Dates: start: 20090422, end: 20091005
  4. NEXIUM [Concomitant]
  5. ARMOUR THYROID [Concomitant]
     Dates: start: 2007, end: 2009
  6. LEVOFLOXACIN [Concomitant]
     Dates: start: 20091006, end: 20091015

REACTIONS (1)
  - Nephrolithiasis [Recovered/Resolved]
